FAERS Safety Report 6205156-6 (Version None)
Quarter: 2009Q2

REPORT INFORMATION
  Report Type: 
  Country: None (occurrence: None)
  Receive Date: 20090527
  Receipt Date: 20090225
  Transmission Date: 20091009
  Serious: No
  Sender: FDA-Public Use
  Company Number: US-ABBOTT-09P-163-0559782-00

PATIENT
  Sex: Male

DRUGS (5)
  1. SIMCOR [Suspect]
     Indication: DRUG USE FOR UNKNOWN INDICATION
     Dates: start: 20090101
  2. SIMCOR [Suspect]
     Dosage: 1000/20 MG DAILY
     Dates: start: 20080801, end: 20090101
  3. PLAQUENIL [Concomitant]
     Indication: DRUG USE FOR UNKNOWN INDICATION
  4. TOPROL-XL [Concomitant]
     Indication: DRUG USE FOR UNKNOWN INDICATION
  5. EXFORGE [Concomitant]
     Indication: DRUG USE FOR UNKNOWN INDICATION
     Dosage: 5/160

REACTIONS (1)
  - BLOOD PRESSURE INCREASED [None]
